FAERS Safety Report 5024901-9 (Version None)
Quarter: 2006Q2

REPORT INFORMATION
  Report Type: 
  Country: None (occurrence: None)
  Receive Date: 20060607
  Receipt Date: 20060519
  Transmission Date: 20061013
  Serious: Yes (Hospitalization, Other)
  Sender: FDA-Public Use
  Company Number: CA200605005265

PATIENT
  Age: 84 Year
  Sex: Female

DRUGS (11)
  1. FORTEO [Suspect]
     Indication: OSTEOPOROSIS
     Dosage: 20 UG, DAILY (1/D)
     Dates: start: 20060424
  2. FORTEO [Concomitant]
  3. FENTANYL [Concomitant]
  4. LASIX [Concomitant]
  5. COLCHICUM JTL LIQ [Concomitant]
  6. ACETAMINOPHEN [Concomitant]
  7. PLAVUX (CLOPIDOGREL SULFATE) [Concomitant]
  8. ALLOPURINOL [Concomitant]
  9. FOSAMAX/ITA (ALENDRONATE SODIUM) [Concomitant]
  10. LOSEC (OMEPRAZOLE) [Concomitant]
  11. EFFEXOR (VENALFAZINE HYDROCHLORIDE) [Concomitant]

REACTIONS (4)
  - ASTHENIA [None]
  - HEPATIC ENZYME INCREASED [None]
  - HYPOKALAEMIA [None]
  - JAUNDICE [None]
